FAERS Safety Report 5976905-7 (Version None)
Quarter: 2008Q4

REPORT INFORMATION
  Report Type: 
  Country: None (occurrence: None)
  Receive Date: 20081203
  Receipt Date: 20080212
  Transmission Date: 20090506
  Serious: No
  Sender: FDA-Public Use
  Company Number: US-AMGEN-KDL265145

PATIENT
  Sex: Female

DRUGS (3)
  1. ENBREL [Suspect]
     Indication: JUVENILE ARTHRITIS
     Dates: start: 19990101, end: 19990101
  2. PLAQUENIL [Concomitant]
     Dates: start: 19900101
  3. METHOTREXATE [Concomitant]
     Dates: start: 19880101

REACTIONS (1)
  - DRUG INEFFECTIVE [None]
